FAERS Safety Report 12632824 (Version 2)
Quarter: 2016Q3

REPORT INFORMATION
  Report Type: Spontaneous
  Country: US (occurrence: US)
  Receive Date: 20160808
  Receipt Date: 20160808
  Transmission Date: 20161109
  Serious: No
  Sender: FDA-Public Use
  Company Number: US-BEH-2015057104

PATIENT
  Sex: Female
  Weight: 60 kg

DRUGS (17)
  1. HIZENTRA [Suspect]
     Active Substance: HUMAN IMMUNOGLOBULIN G
     Indication: IMMUNODEFICIENCY COMMON VARIABLE
     Route: 058
  2. ACETAMINOPHEN. [Concomitant]
     Active Substance: ACETAMINOPHEN
  3. LEVOTHYROXINE. [Concomitant]
     Active Substance: LEVOTHYROXINE
  4. CALCIUM+D [Concomitant]
     Active Substance: CALCIUM\VITAMIN D
  5. MONOCLONAL ANTIBODIES [Concomitant]
     Active Substance: UNSPECIFIED INGREDIENT
  6. EPIPEN [Concomitant]
     Active Substance: EPINEPHRINE
  7. PRILOSEC [Concomitant]
     Active Substance: OMEPRAZOLE MAGNESIUM
  8. ZYRTEC [Concomitant]
     Active Substance: CETIRIZINE HYDROCHLORIDE
  9. DYMISTA [Concomitant]
     Active Substance: AZELASTINE HYDROCHLORIDE\FLUTICASONE PROPIONATE
  10. PLAQUENIL [Concomitant]
     Active Substance: HYDROXYCHLOROQUINE SULFATE
  11. DIPHENHYDRAMINE. [Concomitant]
     Active Substance: DIPHENHYDRAMINE
  12. LIDOCAINE. [Concomitant]
     Active Substance: LIDOCAINE
  13. IMITREX [Concomitant]
     Active Substance: SUMATRIPTAN SUCCINATE
  14. AMITRIPTYLINE [Concomitant]
     Active Substance: AMITRIPTYLINE
  15. SINGULAIR [Concomitant]
     Active Substance: MONTELUKAST SODIUM
  16. PEPCID [Concomitant]
     Active Substance: FAMOTIDINE
  17. PROAIR HFA [Concomitant]
     Active Substance: ALBUTEROL SULFATE

REACTIONS (4)
  - Bronchitis [Unknown]
  - Infusion site swelling [Recovering/Resolving]
  - Infusion site reaction [Recovering/Resolving]
  - Infusion site pruritus [Recovering/Resolving]
